FAERS Safety Report 18398850 (Version 2)
Quarter: 2020Q4

REPORT INFORMATION
  Report Type: Spontaneous
  Country: NO (occurrence: NO)
  Receive Date: 20201019
  Receipt Date: 20201222
  Transmission Date: 20210114
  Serious: Yes (Life-Threatening, Hospitalization, Other)
  Sender: FDA-Public Use
  Company Number: NO-NOVOPROD-756467

PATIENT
  Age: 42 Year
  Sex: Male
  Weight: 78 kg

DRUGS (3)
  1. NOVORAPID [Suspect]
     Active Substance: INSULIN ASPART
     Dosage: 13 UNITS (PUSHED UP TO 8-10 UNITS IN ADDITION TO THE 3 UNITS)
     Route: 058
  2. NOVORAPID [Suspect]
     Active Substance: INSULIN ASPART
     Dosage: 3 UNITS
     Route: 058
  3. NOVORAPID [Suspect]
     Active Substance: INSULIN ASPART
     Indication: TYPE 1 DIABETES MELLITUS
     Dosage: (4-8 UNITS)REASONABLE DOSE
     Route: 058
     Dates: start: 200008

REACTIONS (5)
  - Overdose [Unknown]
  - Blood glucose decreased [Recovered/Resolved]
  - Product administered at inappropriate site [Unknown]
  - Device delivery system issue [Unknown]
  - Shock hypoglycaemic [Unknown]
